FAERS Safety Report 4535340-9 (Version None)
Quarter: 2004Q4

REPORT INFORMATION
  Report Type: 
  Country: None (occurrence: None)
  Receive Date: 20041222
  Receipt Date: 20041213
  Transmission Date: 20050328
  Serious: Yes (Other)
  Sender: FDA-Public Use
  Company Number: JP-NOVOPROD-241140

PATIENT
  Age: 35 Year
  Sex: Male

DRUGS (1)
  1. GLUCAGON G NOVO [Suspect]
     Indication: ENDOSCOPY UPPER GASTROINTESTINAL TRACT
     Dosage: 1 MG, SINGLE
     Route: 030
     Dates: start: 20041126

REACTIONS (5)
  - BLOOD GLUCOSE DECREASED [None]
  - CHEST PAIN [None]
  - HYPOAESTHESIA [None]
  - NAUSEA [None]
  - VOMITING [None]
